FAERS Safety Report 17682364 (Version 1)
Quarter: 2020Q2

REPORT INFORMATION
  Report Type: Spontaneous
  Country: JP (occurrence: JP)
  Receive Date: 20200418
  Receipt Date: 20200418
  Transmission Date: 20200714
  Serious: Yes (Hospitalization)
  Sender: FDA-Public Use
  Company Number: JP-MICRO LABS LIMITED-ML2020-01293

PATIENT
  Age: 43 Year
  Sex: Female
  Weight: 81 kg

DRUGS (5)
  1. IBUPROFEN. [Suspect]
     Active Substance: IBUPROFEN
  2. AMITRIPTYLINE [Suspect]
     Active Substance: AMITRIPTYLINE
     Dosage: 100 TABLETS OF 25 MG AMITRIPTYLINE
  3. LAMOTRIGINE. [Concomitant]
     Active Substance: LAMOTRIGINE
     Dosage: 4 TABLETS OF 100 MG LAMOTRIGINE
  4. RISPERIDONE. [Concomitant]
     Active Substance: RISPERIDONE
     Dosage: 48 TABLETS OF 1 MG RISPERIDONE
  5. CAFFEINE CITRATE. [Suspect]
     Active Substance: CAFFEINE CITRATE
     Dosage: INGESTED DOSE 15,360 MG (190 MG/KG)
     Route: 048

REACTIONS (15)
  - Overdose [Unknown]
  - Hyperhidrosis [Unknown]
  - Hyperlactacidaemia [Unknown]
  - Atrial fibrillation [Recovered/Resolved]
  - Ventricular fibrillation [Unknown]
  - Acute kidney injury [Recovered/Resolved]
  - Mental status changes [Unknown]
  - Tremor [Unknown]
  - Torsade de pointes [Unknown]
  - Shock [Unknown]
  - Rhabdomyolysis [Unknown]
  - Cardiac arrest [Unknown]
  - Toxicity to various agents [Unknown]
  - Hypokalaemia [Unknown]
  - Metabolic acidosis [Unknown]
